FAERS Safety Report 6020294-9 (Version None)
Quarter: 2008Q4

REPORT INFORMATION
  Report Type: 
  Country: None (occurrence: None)
  Receive Date: 20081226
  Receipt Date: 20081219
  Transmission Date: 20090506
  Serious: Yes (Other)
  Sender: FDA-Public Use
  Company Number: US-ROCHE-604660

PATIENT
  Age: 38 Year
  Sex: Female

DRUGS (7)
  1. SAQUINAVIR [Suspect]
     Indication: DRUG USE FOR UNKNOWN INDICATION
     Dosage: STARTED AT WEEK 8 OF GESTATION
     Route: 048
     Dates: start: 20080731
  2. NELFINAVIR [Suspect]
     Indication: DRUG USE FOR UNKNOWN INDICATION
     Route: 048
     Dates: start: 20080619, end: 20080731
  3. LAMIVUDINE AND ZIDOVUDINE [Suspect]
     Indication: DRUG USE FOR UNKNOWN INDICATION
     Dosage: STARTED AT WEEK 8 OF AMENORRHEA
     Route: 048
     Dates: end: 20080731
  4. RITONAVIR [Suspect]
     Indication: DRUG USE FOR UNKNOWN INDICATION
     Dosage: STARTED IN WEEK 8 OF AMENORRHEA
     Route: 048
     Dates: end: 20080619
  5. RITONAVIR [Suspect]
     Route: 048
     Dates: start: 20080731
  6. ZIDOVUDINE [Suspect]
     Indication: DRUG USE FOR UNKNOWN INDICATION
     Route: 048
     Dates: start: 20080731
  7. TENOFOVIR [Suspect]
     Indication: DRUG USE FOR UNKNOWN INDICATION
     Route: 048
     Dates: start: 20080731

REACTIONS (1)
  - INTRA-UTERINE DEATH [None]
